FAERS Safety Report 15043506 (Version 1)
Quarter: 2018Q2

REPORT INFORMATION
  Report Type: Spontaneous
  Country: US (occurrence: US)
  Receive Date: 20180621
  Receipt Date: 20180621
  Transmission Date: 20180711
  Serious: No
  Sender: FDA-Public Use
  Company Number: US-SA-2018SA161354

PATIENT
  Sex: Female

DRUGS (1)
  1. PRALUENT [Suspect]
     Active Substance: ALIROCUMAB
     Indication: TYPE V HYPERLIPIDAEMIA
     Dosage: 75 MG, QOW
     Dates: start: 201709

REACTIONS (10)
  - Memory impairment [Unknown]
  - Urinary tract infection [Unknown]
  - Influenza [Unknown]
  - Disturbance in attention [Unknown]
  - Personality change [Unknown]
  - General physical health deterioration [Unknown]
  - Pharyngitis streptococcal [Unknown]
  - Confusional state [Unknown]
  - Arthralgia [Unknown]
  - Myalgia [Unknown]
